FAERS Safety Report 10209748 (Version 1)
Quarter: 2014Q2

REPORT INFORMATION
  Report Type: Spontaneous
  Country: FI (occurrence: FI)
  Receive Date: 20140602
  Receipt Date: 20140602
  Transmission Date: 20141212
  Serious: Yes (Other)
  Sender: FDA-Public Use
  Company Number: FI-AMGEN-FINSP2014039515

PATIENT
  Age: 82 Year
  Sex: Female

DRUGS (10)
  1. PROLIA [Suspect]
     Indication: OSTEOPOROSIS
     Dosage: UNK
     Route: 058
     Dates: start: 20120419, end: 20131004
  2. PARA-TABS [Concomitant]
     Dosage: 1 G/N
     Route: 048
  3. SOMAC [Concomitant]
     Dosage: 40 MG, QD
     Route: 048
  4. DINIT [Concomitant]
     Dosage: UNK
     Route: 065
  5. CALCICHEW D3 FORTE [Concomitant]
     Dosage: 1 DF, QD
     Route: 048
  6. THYROXIN [Concomitant]
     Dosage: 50 MUG, QD
     Route: 048
  7. NORVASC [Concomitant]
     Dosage: 5 MG, QD
     Route: 048
  8. PREDNISON [Concomitant]
     Dosage: 5 MG, QD
     Route: 048
  9. COHEMIN [Concomitant]
     Route: 065
  10. PRIMASPAN [Concomitant]
     Dosage: 250 MG, QD
     Route: 048

REACTIONS (1)
  - Osteonecrosis of jaw [Not Recovered/Not Resolved]
